FAERS Safety Report 11391200 (Version 1)
Quarter: 2015Q3

REPORT INFORMATION
  Report Type: Spontaneous
  Country: US (occurrence: None)
  Receive Date: 20150814
  Receipt Date: 20150814
  Transmission Date: 20151125
  Serious: Yes (Hospitalization)
  Sender: FDA-Public Use
  Company Number: None

PATIENT
  Age: 65 Year
  Sex: Male
  Weight: 88.3 kg

DRUGS (1)
  1. WARFARIN [Suspect]
     Active Substance: WARFARIN
     Indication: ATRIAL FIBRILLATION
     Route: 048
     Dates: start: 20060922, end: 20150519

REACTIONS (5)
  - Retroperitoneal haematoma [None]
  - Flank pain [None]
  - Haemoglobin increased [None]
  - Adrenalectomy [None]
  - International normalised ratio increased [None]

NARRATIVE: CASE EVENT DATE: 20150519
